FAERS Safety Report 15110113 (Version 2)
Quarter: 2018Q3

REPORT INFORMATION
  Report Type: Report from Study
  Country: PY (occurrence: PY)
  Receive Date: 20180705
  Receipt Date: 20180710
  Transmission Date: 20181010
  Serious: Yes (Death, Hospitalization)
  Sender: FDA-Public Use
  Company Number: PHHY2018PY036921

PATIENT
  Age: 41 Year
  Sex: Male

DRUGS (1)
  1. GLIVEC [Suspect]
     Active Substance: IMATINIB MESYLATE
     Indication: CHRONIC MYELOID LEUKAEMIA
     Dosage: 400 MG, UNK
     Route: 065
     Dates: start: 20160811

REACTIONS (5)
  - Multiple organ dysfunction syndrome [Fatal]
  - Respiratory disorder [Unknown]
  - Blast crisis in myelogenous leukaemia [Unknown]
  - Dengue fever [Unknown]
  - General physical health deterioration [Unknown]

NARRATIVE: CASE EVENT DATE: 20180615
